FAERS Safety Report 7569923-9 (Version None)
Quarter: 2011Q2

REPORT INFORMATION
  Report Type: 
  Country: None (occurrence: None)
  Receive Date: 20110622
  Receipt Date: 20110622
  Transmission Date: 20111010
  Serious: Yes (Hospitalization)
  Sender: FDA-Public Use
  Company Number: None

PATIENT
  Age: 75 Year
  Sex: Male
  Weight: 104.6902 kg

DRUGS (11)
  1. SIMVASTATIN [Suspect]
     Indication: HYPERLIPIDAEMIA
     Dosage: 1 TABLET DAILY PO
     Route: 048
     Dates: start: 20070411, end: 20110620
  2. ASPIRIN [Concomitant]
  3. LISINOPRIL AND HYDROCHLOROTHIAZIDE [Concomitant]
  4. NIACIN [Concomitant]
  5. DAILY FOLIC ACID [Concomitant]
  6. VIAGRA [Concomitant]
  7. VITAMIN D [Concomitant]
  8. NIASPAN [Concomitant]
  9. METOPROLOL SUCCINATE [Concomitant]
  10. CLOPIDOGREL [Concomitant]
  11. VICODIN [Concomitant]

REACTIONS (1)
  - MYALGIA [None]
